FAERS Safety Report 10690804 (Version 1)
Quarter: 2015Q1

REPORT INFORMATION
  Report Type: Spontaneous
  Country: FR (occurrence: FR)
  Receive Date: 20150105
  Receipt Date: 20150105
  Transmission Date: 20150720
  Serious: Yes (Hospitalization)
  Sender: FDA-Public Use
  Company Number: FR-SA-2014SA180962

PATIENT
  Age: 59 Year
  Sex: Male

DRUGS (7)
  1. VANCOMYCINE [Suspect]
     Active Substance: VANCOMYCIN
     Route: 065
     Dates: start: 20141106, end: 20141112
  2. ALDACTONE [Concomitant]
     Active Substance: SPIRONOLACTONE
     Dosage: MORNING
  3. LOVENOX [Suspect]
     Active Substance: ENOXAPARIN SODIUM
     Dosage: STRENGTH : 0.8 ML
     Route: 065
  4. SIMVASTATIN. [Concomitant]
     Active Substance: SIMVASTATIN
     Indication: DYSLIPIDAEMIA
     Dosage: EVENING
     Dates: start: 2007
  5. KREDEX [Concomitant]
     Active Substance: CARVEDILOL
  6. GENTAMICIN SULFATE. [Suspect]
     Active Substance: GENTAMICIN SULFATE
     Dosage: STRENGTH :  200 MG
     Route: 042
     Dates: start: 20141106, end: 20141112
  7. NEXIUM [Concomitant]
     Active Substance: ESOMEPRAZOLE MAGNESIUM

REACTIONS (3)
  - Acute kidney injury [Recovering/Resolving]
  - Overdose [Unknown]
  - Incision site haematoma [Recovering/Resolving]

NARRATIVE: CASE EVENT DATE: 20141107
